FAERS Safety Report 5424465-1 (Version None)
Quarter: 2007Q3

REPORT INFORMATION
  Report Type: 
  Country: None (occurrence: None)
  Receive Date: 20070822
  Receipt Date: 20070810
  Transmission Date: 20080115
  Serious: Yes (Other)
  Sender: FDA-Public Use
  Company Number: 2007BI016890

PATIENT
  Age: 55 Year
  Sex: Male

DRUGS (3)
  1. NATALIZUMAB (NATALIZUMAB ) [Suspect]
     Indication: MULTIPLE SCLEROSIS
     Dosage: 300 MG; QM; IV
     Route: 042
     Dates: start: 20060718
  2. CIPRALEX [Concomitant]
  3. MIRTAZAPINE [Concomitant]

REACTIONS (2)
  - METASTASES TO LIVER [None]
  - PANCREATIC CARCINOMA METASTATIC [None]
